FAERS Safety Report 22525613 (Version 1)
Quarter: 2023Q2

REPORT INFORMATION
  Report Type: Spontaneous
  Country: US (occurrence: None)
  Receive Date: 20230605
  Receipt Date: 20230605
  Transmission Date: 20230722
  Serious: Yes (Hospitalization)
  Sender: FDA-Public Use
  Company Number: None

PATIENT
  Age: 70 Year
  Sex: Male
  Weight: 109.8 kg

DRUGS (13)
  1. BREYANZI [Suspect]
     Active Substance: LISOCABTAGENE MARALEUCEL
     Indication: B-cell lymphoma recurrent
     Dosage: OTHER FREQUENCY : ONCE;?
     Route: 041
     Dates: start: 20230131, end: 20230131
  2. ALLOPURINOL [Concomitant]
     Active Substance: ALLOPURINOL
  3. FLUCONAZOLE [Concomitant]
     Active Substance: FLUCONAZOLE
  4. FUROSEMIDE [Concomitant]
     Active Substance: FUROSEMIDE
  5. INSULIN GLARGINE [Concomitant]
     Active Substance: INSULIN GLARGINE
  6. INSULIN LISPRO [Concomitant]
     Active Substance: INSULIN LISPRO
  7. LEVETIRACETAM [Concomitant]
     Active Substance: LEVETIRACETAM
  8. LEVOTHYROXINE [Concomitant]
     Active Substance: LEVOTHYROXINE
  9. METOPROLOL SUCCINATE [Concomitant]
     Active Substance: METOPROLOL SUCCINATE
  10. PANTOPRAZOLE SODIUM [Concomitant]
     Active Substance: PANTOPRAZOLE SODIUM
  11. SACUBITRIL\VALSARTAN [Concomitant]
     Active Substance: SACUBITRIL\VALSARTAN
  12. SPIRONOLACTONE [Concomitant]
     Active Substance: SPIRONOLACTONE
  13. VALACYCLOVIR [Concomitant]
     Active Substance: VALACYCLOVIR HYDROCHLORIDE

REACTIONS (4)
  - Atrial fibrillation [None]
  - Cytokine release syndrome [None]
  - Immune effector cell-associated neurotoxicity syndrome [None]
  - Serum ferritin increased [None]

NARRATIVE: CASE EVENT DATE: 20230201
